FAERS Safety Report 5403997-6 (Version None)
Quarter: 2007Q3

REPORT INFORMATION
  Report Type: 
  Country: None (occurrence: None)
  Receive Date: 20070802
  Receipt Date: 20070726
  Transmission Date: 20080115
  Serious: Yes (Hospitalization)
  Sender: FDA-Public Use
  Company Number: B0481500A

PATIENT
  Age: 77 Year
  Sex: Male

DRUGS (5)
  1. REQUIP [Suspect]
     Indication: PARKINSONISM
     Dosage: 6MG PER DAY
     Route: 048
     Dates: start: 20060514, end: 20070114
  2. MADOPAR [Suspect]
     Indication: PARKINSONISM
     Dosage: 1G PER DAY
     Route: 048
     Dates: start: 20060514, end: 20070114
  3. CASODEX [Suspect]
     Indication: PARKINSONISM
     Dosage: 150MG PER DAY
     Route: 048
     Dates: start: 20060414, end: 20070114
  4. ENALAPRIL MALEATE [Concomitant]
     Route: 048
  5. PROMAZINE HCL [Concomitant]

REACTIONS (2)
  - CIRCULATORY COLLAPSE [None]
  - LOCKED-IN SYNDROME [None]
